FAERS Safety Report 6125776-7 (Version None)
Quarter: 2009Q1

REPORT INFORMATION
  Report Type: 
  Country: None (occurrence: None)
  Receive Date: 20090318
  Receipt Date: 20081215
  Transmission Date: 20090719
  Serious: Yes (Other)
  Sender: FDA-Public Use
  Company Number: 08-002010

PATIENT
  Age: 30 Year
  Sex: Female
  Weight: 97.5 kg

DRUGS (3)
  1. LOESTRIN 24 FE [Suspect]
     Indication: CONTRACEPTION
     Dosage: 20/1000UG, QD, ORAL
     Route: 048
     Dates: start: 20060201
  2. PRILOSEC [Concomitant]
  3. SINGULAIR [Concomitant]

REACTIONS (4)
  - ERUCTATION [None]
  - GALLBLADDER DISORDER [None]
  - MUSCLE SPASMS [None]
  - NAUSEA [None]
